FAERS Safety Report 5986669-9 (Version None)
Quarter: 2008Q4

REPORT INFORMATION
  Report Type: 
  Country: None (occurrence: None)
  Receive Date: 20081209
  Receipt Date: 20081127
  Transmission Date: 20090506
  Serious: Yes (Hospitalization, Other)
  Sender: FDA-Public Use
  Company Number: DE-ROCHE-488779

PATIENT
  Age: 65 Year
  Sex: Female
  Weight: 64 kg

DRUGS (8)
  1. CAPECITABINE [Suspect]
     Route: 048
     Dates: start: 20060327, end: 20060502
  2. CAPECITABINE [Suspect]
     Dosage: FREQUENCY REPORTED:D1-14 Q21 D
     Route: 048
     Dates: start: 20060327, end: 20060806
  3. CAPECITABINE [Suspect]
     Dosage: FREQUENCY REPORTED:D1-14 Q21 D
     Route: 048
     Dates: start: 20060419, end: 20060502
  4. CAPECITABINE [Suspect]
     Dosage: FREQUENCY REPORTED:D1-14 Q21 D
     Route: 048
     Dates: start: 20070123, end: 20070521
  5. OMEPRAZOLE [Concomitant]
     Route: 048
  6. IBUPROFEN TABLETS [Concomitant]
     Indication: PAIN
     Route: 048
     Dates: start: 20061201
  7. FORTECORTIN [Concomitant]
     Indication: NAUSEA
     Route: 042
     Dates: start: 20051201
  8. BONDRONAT [Concomitant]
     Route: 042
     Dates: start: 20040901

REACTIONS (4)
  - CONTRALATERAL BREAST CANCER [None]
  - LUMBAR VERTEBRAL FRACTURE [None]
  - PALMAR-PLANTAR ERYTHRODYSAESTHESIA SYNDROME [None]
  - THORACIC VERTEBRAL FRACTURE [None]
